FAERS Safety Report 19747028 (Version 3)
Quarter: 2021Q3

REPORT INFORMATION
  Report Type: Spontaneous
  Country: US (occurrence: US)
  Receive Date: 20210826
  Receipt Date: 20210907
  Transmission Date: 20211014
  Serious: Yes (Death, Life-Threatening, Hospitalization)
  Sender: FDA-Public Use
  Company Number: US-MELINTA THERAPEUTICS, LLC-US-MLNT-20-00085

PATIENT
  Age: 62 Year
  Sex: Female
  Weight: 83.9 kg

DRUGS (17)
  1. VABOMERE [Suspect]
     Active Substance: MEROPENEM\VABORBACTAM
     Indication: BACTERIAL INFECTION
     Dosage: DOSE OF 2000 MG WITH DURATION OF 180 MINS AND INFUSION RATE 1.39 ML/MIN, TOTAL DAILY DOSE 4 G
     Route: 041
     Dates: start: 20190520, end: 20190521
  2. METOCLOPRAMIDE HCL [Concomitant]
     Active Substance: METOCLOPRAMIDE HYDROCHLORIDE
     Indication: PROPHYLAXIS
     Route: 042
     Dates: start: 20190520, end: 20190527
  3. VANCOMYCIN [Concomitant]
     Active Substance: VANCOMYCIN
     Indication: PYREXIA
     Route: 042
     Dates: start: 20190419, end: 20190504
  4. INSULIN GLARGINE [Concomitant]
     Active Substance: INSULIN GLARGINE
     Indication: DIABETES MELLITUS
     Route: 058
     Dates: start: 20190511, end: 20190526
  5. DAPTOMYCIN. [Concomitant]
     Active Substance: DAPTOMYCIN
     Indication: PROPHYLAXIS
     Route: 042
     Dates: start: 20190522, end: 20190525
  6. VANCOMYCIN [Concomitant]
     Active Substance: VANCOMYCIN
     Indication: EVIDENCE BASED TREATMENT
     Route: 042
     Dates: start: 20190507, end: 20190507
  7. AMPICILLIN [Concomitant]
     Active Substance: AMPICILLIN
     Indication: ENTEROCOCCAL INFECTION
     Route: 042
     Dates: start: 20190518, end: 20190522
  8. LEVALBUTEROL. [Concomitant]
     Active Substance: LEVALBUTEROL
     Indication: RESPIRATORY FAILURE
     Dates: start: 20190406, end: 20190527
  9. VANCOMYCIN [Concomitant]
     Active Substance: VANCOMYCIN
     Indication: SOFT TISSUE NECROSIS
     Route: 042
     Dates: start: 20190508, end: 20190508
  10. VABOMERE [Suspect]
     Active Substance: MEROPENEM\VABORBACTAM
     Dosage: DOSE OF 2000 MG WITH DURATION OF 180 MINS AND INFUSION RATE 1.39 ML/MIN, TOTAL DAILY DOSE 6 G
     Route: 041
     Dates: start: 20190521, end: 20190523
  11. AMIODARONE [Concomitant]
     Active Substance: AMIODARONE
     Indication: ATRIAL FIBRILLATION
     Route: 048
     Dates: start: 20190502, end: 20190525
  12. ASPIRIN. [Concomitant]
     Active Substance: ASPIRIN
     Indication: PROPHYLAXIS
     Route: 048
     Dates: start: 20190515, end: 20190527
  13. DRONABINOL. [Concomitant]
     Active Substance: DRONABINOL
     Indication: AGITATION
     Route: 048
     Dates: start: 20190429, end: 20190527
  14. PANTOPRAZOLE [Concomitant]
     Active Substance: PANTOPRAZOLE
     Indication: PROPHYLAXIS
     Route: 042
     Dates: start: 20190417, end: 20190527
  15. WARFARIN [Concomitant]
     Active Substance: WARFARIN
     Indication: PROPHYLAXIS
     Route: 048
     Dates: start: 20190520, end: 20190526
  16. VANCOMYCIN [Concomitant]
     Active Substance: VANCOMYCIN
     Route: 042
     Dates: start: 20190510, end: 20190510
  17. QUETIAPINE. [Concomitant]
     Active Substance: QUETIAPINE
     Indication: DELIRIUM
     Route: 048
     Dates: start: 20190517, end: 20190523

REACTIONS (3)
  - Stevens-Johnson syndrome [Fatal]
  - Toxic epidermal necrolysis [Fatal]
  - Drug eruption [Fatal]

NARRATIVE: CASE EVENT DATE: 20190523
